FAERS Safety Report 4382530-4 (Version None)
Quarter: 2004Q2

REPORT INFORMATION
  Report Type: 
  Country: None (occurrence: None)
  Receive Date: 20040617
  Receipt Date: 20040608
  Transmission Date: 20050107
  Serious: Yes (Other)
  Sender: FDA-Public Use
  Company Number: 2004039100

PATIENT
  Age: 55 Year
  Sex: Female

DRUGS (1)
  1. RELPAX [Suspect]
     Indication: MIGRAINE
     Dosage: (80 MG), ORAL
     Route: 048
     Dates: start: 20040601, end: 20040601

REACTIONS (1)
  - COLITIS ISCHAEMIC [None]
